FAERS Safety Report 5814337-2 (Version None)
Quarter: 2008Q3

REPORT INFORMATION
  Report Type: 
  Country: None (occurrence: None)
  Receive Date: 20080715
  Receipt Date: 20080707
  Transmission Date: 20090109
  Serious: Yes (Other)
  Sender: FDA-Public Use
  Company Number: 030253

PATIENT
  Sex: Male

DRUGS (1)
  1. TETRACYCLINE HYDROCHLORIDE [Suspect]

REACTIONS (1)
  - APLASTIC ANAEMIA [None]
